FAERS Safety Report 9707371 (Version 2)
Quarter: 2015Q2

REPORT INFORMATION
  Report Type: Spontaneous
  Country: US (occurrence: US)
  Receive Date: 20131125
  Receipt Date: 20150515
  Transmission Date: 20150821
  Serious: Yes (Other)
  Sender: FDA-Public Use
  Company Number: US-GLAXOSMITHKLINE-A1036486A

PATIENT
  Sex: Female

DRUGS (2)
  1. VENTOLIN HFA [Suspect]
     Active Substance: ALBUTEROL SULFATE
     Indication: ASTHMA
     Route: 065
     Dates: start: 20121113
  2. FLOVENT [Suspect]
     Active Substance: FLUTICASONE PROPIONATE
     Indication: ASTHMA
     Dosage: 250 MCG
     Route: 065
     Dates: start: 20121123

REACTIONS (5)
  - Limb operation [Unknown]
  - Asthma [Recovering/Resolving]
  - Gastrointestinal disorder [Unknown]
  - Vein disorder [Unknown]
  - Incorrect dosage administered [Unknown]
